FAERS Safety Report 9601987 (Version 2)
Quarter: 2013Q4

REPORT INFORMATION
  Report Type: Report from Study
  Country: DE (occurrence: DE)
  Receive Date: 20131007
  Receipt Date: 20131115
  Transmission Date: 20140711
  Serious: Yes (Death, Hospitalization, Other)
  Sender: FDA-Public Use
  Company Number: PHHY2013DE111250

PATIENT
  Sex: Male

DRUGS (3)
  1. ICL670A [Suspect]
     Indication: IRON OVERLOAD
     Dosage: 1000 MG, DAILY
     Route: 048
     Dates: start: 20110209
  2. ICL670A [Suspect]
     Dosage: 500 MG, DAILY
     Route: 048
     Dates: start: 20110223
  3. INUVAIR [Concomitant]
     Indication: CHRONIC OBSTRUCTIVE PULMONARY DISEASE
     Dosage: 400 UG
     Route: 048
     Dates: start: 20100907

REACTIONS (4)
  - Death [Fatal]
  - Ileus [Unknown]
  - Parvovirus infection [Unknown]
  - Creatinine renal clearance [Not Recovered/Not Resolved]
